FAERS Safety Report 4600950-7 (Version None)
Quarter: 2005Q1

REPORT INFORMATION
  Report Type: 
  Country: None (occurrence: None)
  Receive Date: 20050127
  Receipt Date: 20041026
  Transmission Date: 20050727
  Serious: No
  Sender: FDA-Public Use
  Company Number: USA041082308

PATIENT
  Age: 22 Year
  Sex: Male

DRUGS (1)
  1. STRATTERA [Suspect]
     Dosage: 40 MG/1 IN THE MORNING
     Dates: start: 20041007

REACTIONS (4)
  - DIZZINESS [None]
  - HUNGER [None]
  - SOMNOLENCE [None]
  - STRABISMUS [None]
